FAERS Safety Report 5871708-6 (Version None)
Quarter: 2008Q3

REPORT INFORMATION
  Report Type: 
  Country: None (occurrence: None)
  Receive Date: 20080905
  Receipt Date: 20080828
  Transmission Date: 20090109
  Serious: Yes (Hospitalization, Other)
  Sender: FDA-Public Use
  Company Number: FR-NOVOPROD-275801

PATIENT
  Age: 34 Year
  Sex: Female

DRUGS (8)
  1. ACTRAPID [Suspect]
     Dates: start: 20080113
  2. MORPHINE [Concomitant]
     Route: 042
  3. MOPRAL                             /00661201/ [Concomitant]
     Dates: start: 20080113, end: 20080120
  4. VITAMIN K TAB [Concomitant]
     Dates: start: 20080113, end: 20080128
  5. OFLOCET                            /00731801/ [Concomitant]
     Indication: COLITIS
     Dates: start: 20080113, end: 20080128
  6. FLAGYL [Concomitant]
     Indication: COLITIS
     Dates: start: 20080113, end: 20080119
  7. ATARAX [Concomitant]
     Route: 042
     Dates: start: 20080113, end: 20080202
  8. PRAZEPAM [Concomitant]
     Route: 042
     Dates: start: 20080113, end: 20080202

REACTIONS (4)
  - CAESAREAN SECTION [None]
  - DRUG ERUPTION [None]
  - PREMATURE LABOUR [None]
  - PSEUDOMEMBRANOUS COLITIS [None]
